FAERS Safety Report 23484509 (Version 1)
Quarter: 2024Q1

REPORT INFORMATION
  Report Type: Spontaneous
  Country: TW (occurrence: TW)
  Receive Date: 20240206
  Receipt Date: 20240206
  Transmission Date: 20240409
  Serious: Yes (Hospitalization)
  Sender: FDA-Public Use
  Company Number: TW-MTPC-MTPC2024-0002281

PATIENT
  Age: 19 Year
  Sex: Male

DRUGS (1)
  1. REMICADE [Suspect]
     Active Substance: INFLIXIMAB
     Indication: Crohn^s disease
     Dosage: 200 MILLIGRAM, Q8WEEKS
     Route: 042
     Dates: start: 20220703

REACTIONS (9)
  - Colitis [Unknown]
  - Diarrhoea [Unknown]
  - Urinary incontinence [Unknown]
  - Asthenia [Unknown]
  - Dyspnoea [Unknown]
  - Asthenia [Unknown]
  - Electrolyte imbalance [Unknown]
  - Hyperammonaemia [Unknown]
  - Dehydration [Unknown]

NARRATIVE: CASE EVENT DATE: 20240127
